FAERS Safety Report 10082332 (Version 1)
Quarter: 2014Q2

REPORT INFORMATION
  Report Type: Spontaneous
  Country: US (occurrence: None)
  Receive Date: 20140414
  Receipt Date: 20140414
  Transmission Date: 20141212
  Serious: Yes (Hospitalization)
  Sender: FDA-Public Use
  Company Number: None

PATIENT
  Age: 48 Year
  Sex: Male
  Weight: 92.99 kg

DRUGS (2)
  1. LAMICTAL [Suspect]
     Indication: CONVULSION PROPHYLAXIS
     Dosage: 100MG AM, 50 MG PM?
     Route: 048
     Dates: start: 20140228, end: 20140408
  2. KEPPRA [Suspect]
     Indication: CONVULSION PROPHYLAXIS
     Dosage: 1000MG AM. 750MG PM?
     Route: 048
     Dates: start: 20140128

REACTIONS (3)
  - Headache [None]
  - Fatigue [None]
  - Convulsion [None]
